FAERS Safety Report 20309464 (Version 1)
Quarter: 2022Q1

REPORT INFORMATION
  Report Type: Spontaneous
  Country: US (occurrence: None)
  Receive Date: 20220106
  Receipt Date: 20220106
  Transmission Date: 20220423
  Serious: Yes (Life-Threatening, Hospitalization, Disabling, Other)
  Sender: FDA-Public Use
  Company Number: None

PATIENT
  Age: 65 Year
  Sex: Female
  Weight: 56.7 kg

DRUGS (2)
  1. TRAZODONE [Suspect]
     Active Substance: TRAZODONE HYDROCHLORIDE
     Indication: Injury
     Dosage: FREQUENCY : AT BEDTIME;?
  2. OLANZAPINE [Suspect]
     Active Substance: OLANZAPINE
     Dosage: FREQUENCY : DAILY;?

REACTIONS (19)
  - Emotional distress [None]
  - Emotional distress [None]
  - Adverse drug reaction [None]
  - Adverse drug reaction [None]
  - Sedation [None]
  - Product prescribing issue [None]
  - Brain injury [None]
  - Multi-organ disorder [None]
  - Dementia Alzheimer^s type [None]
  - Toxicity to various agents [None]
  - Discomfort [None]
  - Stress [None]
  - Hypophagia [None]
  - Anxiety [None]
  - Psychotic disorder [None]
  - Hip arthroplasty [None]
  - Pain [None]
  - Asthenia [None]
  - Product administration error [None]

NARRATIVE: CASE EVENT DATE: 20161201
